FAERS Safety Report 15891610 (Version 1)
Quarter: 2019Q1

REPORT INFORMATION
  Report Type: Spontaneous
  Country: ES (occurrence: ES)
  Receive Date: 20190130
  Receipt Date: 20190130
  Transmission Date: 20190417
  Serious: Yes (Hospitalization)
  Sender: FDA-Public Use
  Company Number: PHHY2019ES018402

PATIENT
  Age: 85 Year
  Sex: Female

DRUGS (2)
  1. FUROSEMIDE. [Suspect]
     Active Substance: FUROSEMIDE
     Indication: CARDIAC FAILURE
     Dosage: 60 MG, QD (1-1/2-0)
     Route: 065
     Dates: start: 20180109
  2. HIDROCORTISONA [Concomitant]
     Active Substance: HYDROCORTISONE
     Indication: PEMPHIGOID
     Dosage: 10 MG, QD
     Route: 048
     Dates: start: 20170101

REACTIONS (1)
  - Hyponatraemia [Recovered/Resolved]

NARRATIVE: CASE EVENT DATE: 20180118
